FAERS Safety Report 5026424-X (Version None)
Quarter: 2006Q2

REPORT INFORMATION
  Report Type: 
  Country: None (occurrence: None)
  Receive Date: 20060613
  Receipt Date: 20060613
  Transmission Date: 20061013
  Serious: No
  Sender: FDA-Public Use
  Company Number: None

PATIENT
  Age: 27 Year
  Sex: Male

DRUGS (2)
  1. BACLOFEN [Suspect]
     Indication: MUSCLE SPASTICITY
     Dosage: IT BACLOFEN 271 MCG/DAY      271 MCG/DAY  IT
     Route: 037
     Dates: start: 20000519, end: 20060612
  2. BACLOFEN [Suspect]
     Indication: QUADRIPLEGIA
     Dosage: IT BACLOFEN 271 MCG/DAY      271 MCG/DAY  IT
     Route: 037
     Dates: start: 20000519, end: 20060612

REACTIONS (5)
  - CONDITION AGGRAVATED [None]
  - DEVICE FAILURE [None]
  - INCORRECT DOSE ADMINISTERED [None]
  - MUSCLE SPASTICITY [None]
  - PHARMACEUTICAL PRODUCT COMPLAINT [None]
